FAERS Safety Report 10160780 (Version 2)
Quarter: 2014Q2

REPORT INFORMATION
  Report Type: Spontaneous
  Country: IT (occurrence: IT)
  Receive Date: 20140508
  Receipt Date: 20140508
  Transmission Date: 20141212
  Serious: Yes (Other)
  Sender: FDA-Public Use
  Company Number: IT-TEVA-476402ISR

PATIENT
  Age: 67 Year
  Sex: Female
  Weight: 56 kg

DRUGS (4)
  1. OXALIPLATIN [Suspect]
     Indication: OESOPHAGEAL CARCINOMA
     Dosage: 108 MG CYCLICAL
     Route: 042
     Dates: start: 20130415, end: 20130807
  2. FLUOROURACIL [Suspect]
     Indication: OESOPHAGEAL CARCINOMA
     Dosage: 518 MG CYCLICAL
     Route: 040
     Dates: start: 20130415, end: 20130807
  3. FLUOROURACIL [Suspect]
     Indication: OESOPHAGEAL CARCINOMA
     Dosage: 3110 MG CYCLICAL
     Route: 041
     Dates: start: 20130415, end: 20130807
  4. LEVOFOLINIC ACID [Concomitant]
     Indication: PRODUCT USED FOR UNKNOWN INDICATION

REACTIONS (2)
  - Neutropenia [Unknown]
  - Off label use [Unknown]
